FAERS Safety Report 9387478 (Version 1)
Quarter: 2013Q3

REPORT INFORMATION
  Report Type: Spontaneous
  Country: US (occurrence: US)
  Receive Date: 20130708
  Receipt Date: 20130708
  Transmission Date: 20140515
  Serious: No
  Sender: FDA-Public Use
  Company Number: US-PFIZER INC-2013199194

PATIENT
  Age: 70 Year
  Sex: Female
  Weight: 72.6 kg

DRUGS (2)
  1. PREMARIN [Suspect]
     Indication: HORMONE REPLACEMENT THERAPY
     Dosage: 1 G, 2X/WEEK
     Route: 067
  2. AZOR [Concomitant]
     Indication: HYPERTENSION
     Dosage: AMLODIPINE 5 MG/ OLMESARTAN MEDOXOMIL 40MG, 1X/DAY

REACTIONS (1)
  - Hypotension [Unknown]
